FAERS Safety Report 11819657 (Version 1)
Quarter: 2015Q4

REPORT INFORMATION
  Report Type: Spontaneous
  Country: US (occurrence: None)
  Receive Date: 20151209
  Receipt Date: 20151209
  Transmission Date: 20160305
  Serious: Yes (Hospitalization)
  Sender: FDA-Public Use
  Company Number: None

PATIENT
  Age: 81 Year
  Sex: Female
  Weight: 49.1 kg

DRUGS (10)
  1. COZAAR [Concomitant]
     Active Substance: LOSARTAN POTASSIUM
  2. VERELAN [Concomitant]
     Active Substance: VERAPAMIL HYDROCHLORIDE
  3. VITD [Concomitant]
  4. VENTOLIN HFA [Suspect]
     Active Substance: ALBUTEROL SULFATE
     Dosage: 90MCG 2 PUFFS BID INHALATION?CHRONIC (STOPPED 1 1/2 WK AGO)
     Route: 055
  5. ALBUTEROL NEBULIZER [Suspect]
     Active Substance: ALBUTEROL
     Dosage: 2.5/3ML Q6HRS PRN NEBULIZAION?RECENT
  6. APAP [Concomitant]
     Active Substance: ACETAMINOPHEN
  7. FLOVENT HFA [Concomitant]
     Active Substance: FLUTICASONE PROPIONATE
  8. ZANTACK [Concomitant]
  9. TRANXENE T-TAB [Concomitant]
     Active Substance: CLORAZEPATE DIPOTASSIUM
  10. SYNTHROID [Concomitant]
     Active Substance: LEVOTHYROXINE SODIUM

REACTIONS (4)
  - Anxiety [None]
  - Dyskinesia [None]
  - Tremor [None]
  - Mental status changes [None]

NARRATIVE: CASE EVENT DATE: 20150130
